FAERS Safety Report 21514543 (Version 1)
Quarter: 2022Q4

REPORT INFORMATION
  Report Type: Report from Study
  Country: AU (occurrence: AU)
  Receive Date: 20221027
  Receipt Date: 20221027
  Transmission Date: 20230113
  Serious: Yes (Other)
  Sender: FDA-Public Use
  Company Number: AU-JNJFOC-20221034556

PATIENT
  Sex: Female

DRUGS (2)
  1. IMBRUVICA [Suspect]
     Active Substance: IBRUTINIB
     Indication: Leukaemia
     Route: 048
     Dates: start: 20211018
  2. BENSERAZIDE HYDROCHLORIDE\LEVODOPA [Concomitant]
     Active Substance: BENSERAZIDE HYDROCHLORIDE\LEVODOPA
     Indication: Progressive supranuclear palsy
     Route: 048

REACTIONS (5)
  - Fungal skin infection [Not Recovered/Not Resolved]
  - Urinary tract infection [Recovered/Resolved]
  - Incontinence [Recovered/Resolved]
  - Off label use [Unknown]
  - Peripheral swelling [Recovering/Resolving]
